FAERS Safety Report 5903624-5 (Version None)
Quarter: 2008Q3

REPORT INFORMATION
  Report Type: 
  Country: None (occurrence: None)
  Receive Date: 20080930
  Receipt Date: 20080929
  Transmission Date: 20090109
  Serious: Yes (Other)
  Sender: FDA-Public Use
  Company Number: FR-RB-008423-07

PATIENT
  Age: 45 Year
  Sex: Male
  Weight: 58 kg

DRUGS (5)
  1. SUBUTEX [Suspect]
     Indication: DRUG THERAPY
     Dosage: DOSAGE AND FREQUENCY UNKNOWN
     Route: 055
  2. SUBUTEX [Suspect]
     Route: 065
     Dates: start: 20000101
  3. HALOPERIDOL DECANOATE [Concomitant]
     Indication: DELUSION
     Route: 065
     Dates: start: 20080101
  4. OXAZEPAM [Concomitant]
     Indication: INSOMNIA
     Route: 065
     Dates: start: 20080101
  5. TEMESTA [Concomitant]
     Indication: DRUG USE FOR UNKNOWN INDICATION
     Dosage: DOSAGE AND FREQUENCY UNKNOWN.
     Route: 065

REACTIONS (2)
  - ATRIAL FIBRILLATION [None]
  - BASEDOW'S DISEASE [None]
